FAERS Safety Report 23969932 (Version 1)
Quarter: 2024Q2

REPORT INFORMATION
  Report Type: Spontaneous
  Country: US (occurrence: US)
  Receive Date: 20240613
  Receipt Date: 20240613
  Transmission Date: 20240717
  Serious: No
  Sender: FDA-Public Use
  Company Number: US-Orient Pharma-000156

PATIENT
  Age: 84 Year
  Sex: Female

DRUGS (1)
  1. VANCOMYCIN HYDROCHLORIDE [Suspect]
     Active Substance: VANCOMYCIN HYDROCHLORIDE
     Indication: Product used for unknown indication
     Dosage: STRENGTH: 250 MG; CRUSHED, MIXED IN WATER, DISPENSED VIA GASTROTOMY TUBE

REACTIONS (2)
  - Incorrect product dosage form administered [Unknown]
  - Intentional product misuse [Unknown]
